FAERS Safety Report 5695302-5 (Version None)
Quarter: 2008Q2

REPORT INFORMATION
  Report Type: 
  Country: None (occurrence: None)
  Receive Date: 20080404
  Receipt Date: 20080325
  Transmission Date: 20081010
  Serious: Yes (Hospitalization, Other)
  Sender: FDA-Public Use
  Company Number: US-PFIZER INC-2008027804

PATIENT
  Sex: Male

DRUGS (3)
  1. GLIBENCLAMIDE TABLET [Suspect]
     Indication: TYPE 2 DIABETES MELLITUS
  2. ANTI-DIABETICS [Concomitant]
  3. LIPITOR [Concomitant]

REACTIONS (6)
  - CHEST PAIN [None]
  - HYPERHIDROSIS [None]
  - MALAISE [None]
  - MYOCARDIAL INFARCTION [None]
  - RENAL FUNCTION TEST ABNORMAL [None]
  - VISUAL ACUITY REDUCED [None]
